FAERS Safety Report 24715101 (Version 1)
Quarter: 2024Q4

REPORT INFORMATION
  Report Type: Spontaneous
  Country: US (occurrence: US)
  Receive Date: 20241210
  Receipt Date: 20241210
  Transmission Date: 20250114
  Serious: No
  Sender: AUROBINDO
  Company Number: US-AUROBINDO-AUR-APL-2024-026526

PATIENT
  Age: 70 Year
  Sex: Male
  Weight: 130 kg

DRUGS (1)
  1. SERTRALINE [Suspect]
     Active Substance: SERTRALINE HYDROCHLORIDE
     Indication: Anxiety
     Dosage: UNK, AS DIRECTED
     Route: 048
     Dates: start: 20240522

REACTIONS (2)
  - Throat irritation [Unknown]
  - Wrong technique in product usage process [Unknown]
